FAERS Safety Report 8322547-8 (Version None)
Quarter: 2012Q2

REPORT INFORMATION
  Report Type: 
  Country: None (occurrence: None)
  Receive Date: 20120430
  Receipt Date: 20100205
  Transmission Date: 20120825
  Serious: No
  Sender: FDA-Public Use
  Company Number: US-TEVA-2010000773

PATIENT
  Sex: Female
  Weight: 77.18 kg

DRUGS (1)
  1. NUVIGIL [Suspect]
     Indication: SOMNOLENCE
     Dosage: 250 MILLIGRAM;
     Route: 048
     Dates: end: 20100201

REACTIONS (3)
  - BLISTER [None]
  - LIP SWELLING [None]
  - PRURITUS [None]
